FAERS Safety Report 12169110 (Version 1)
Quarter: 2016Q1

REPORT INFORMATION
  Report Type: Spontaneous
  Country: US (occurrence: US)
  Receive Date: 20160310
  Receipt Date: 20160310
  Transmission Date: 20160526
  Serious: Yes (Hospitalization, Other)
  Sender: FDA-Public Use
  Company Number: PHHY2016US030123

PATIENT
  Age: 39 Year
  Sex: Female

DRUGS (2)
  1. LABETALOL [Suspect]
     Active Substance: LABETALOL\LABETALOL HYDROCHLORIDE
     Indication: AORTIC DISSECTION
     Dosage: MAXIMAL DOSE OF 2 MG/MIN
     Route: 041
  2. NICARDIPINE [Suspect]
     Active Substance: NICARDIPINE
     Indication: PRODUCT USED FOR UNKNOWN INDICATION
     Dosage: 2.5 MG/H,
     Route: 041

REACTIONS (4)
  - Premature delivery [Unknown]
  - Aortic dilatation [Unknown]
  - Bradycardia [Unknown]
  - Maternal exposure during pregnancy [Unknown]
